FAERS Safety Report 18431660 (Version 1)
Quarter: 2020Q4

REPORT INFORMATION
  Report Type: Spontaneous
  Country: US (occurrence: US)
  Receive Date: 20201027
  Receipt Date: 20201027
  Transmission Date: 20210114
  Serious: No
  Sender: FDA-Public Use
  Company Number: None

PATIENT
  Age: 58 Year
  Sex: Male
  Weight: 62 kg

DRUGS (1)
  1. LISINOPRIL. [Suspect]
     Active Substance: LISINOPRIL
     Indication: DIASTOLIC DYSFUNCTION
     Route: 048
     Dates: start: 20160808, end: 20200927

REACTIONS (1)
  - Angioedema [None]

NARRATIVE: CASE EVENT DATE: 20200927
